FAERS Safety Report 5224823-4 (Version None)
Quarter: 2007Q1

REPORT INFORMATION
  Report Type: 
  Country: None (occurrence: None)
  Receive Date: 20070131
  Receipt Date: 20070122
  Transmission Date: 20070707
  Serious: Yes (Congenital Anomaly)
  Sender: FDA-Public Use
  Company Number: FR-ABBOTT-07P-056-0356539-00

PATIENT
  Sex: Male

DRUGS (1)
  1. DEPAKENE [Suspect]
     Indication: DRUG EXPOSURE DURING PREGNANCY

REACTIONS (8)
  - CONGENITAL HAND MALFORMATION [None]
  - CRYPTORCHISM [None]
  - DEVELOPMENTAL DELAY [None]
  - DYSMORPHISM [None]
  - HYPOSPADIAS [None]
  - PYELECTASIA [None]
  - SALIVARY HYPERSECRETION [None]
  - SPEECH DISORDER DEVELOPMENTAL [None]
